FAERS Safety Report 16837973 (Version 3)
Quarter: 2019Q3

REPORT INFORMATION
  Report Type: Report from Study
  Country: IL (occurrence: US)
  Receive Date: 20190923
  Receipt Date: 20190925
  Transmission Date: 20191005
  Serious: Yes (Other)
  Sender: FDA-Public Use
  Company Number: IL-TEVA-2019-IL-1112051

PATIENT
  Age: 70 Year
  Sex: Female

DRUGS (3)
  1. CIPROFLOXACIN. [Suspect]
     Active Substance: CIPROFLOXACIN
     Indication: SALMONELLA BACTERAEMIA
     Route: 065
  2. MEROPENEM. [Suspect]
     Active Substance: MEROPENEM
     Indication: SALMONELLA BACTERAEMIA
     Route: 065
  3. PIPERACILLIN AND TAZOBACTAM [Suspect]
     Active Substance: PIPERACILLIN SODIUM\TAZOBACTAM SODIUM
     Indication: SALMONELLA BACTERAEMIA
     Route: 065

REACTIONS (1)
  - Pathogen resistance [Recovered/Resolved]
